FAERS Safety Report 19078573 (Version 1)
Quarter: 2021Q1

REPORT INFORMATION
  Report Type: Spontaneous
  Country: US (occurrence: US)
  Receive Date: 20210331
  Receipt Date: 20210331
  Transmission Date: 20210420
  Serious: No
  Sender: FDA-Public Use
  Company Number: US-ASTRAZENECA-2021A102568

PATIENT
  Sex: Female

DRUGS (2)
  1. COVID19 VACCINE [Concomitant]
  2. BRILINTA [Suspect]
     Active Substance: TICAGRELOR
     Indication: STENT PLACEMENT
     Route: 048

REACTIONS (3)
  - Increased tendency to bruise [Unknown]
  - Dysuria [Unknown]
  - Blood urine [Recovered/Resolved]
